FAERS Safety Report 7882078-6 (Version None)
Quarter: 2011Q4

REPORT INFORMATION
  Report Type: 
  Country: None (occurrence: None)
  Receive Date: 20111101
  Receipt Date: 20110608
  Transmission Date: 20120403
  Serious: Yes (Hospitalization)
  Sender: FDA-Public Use
  Company Number: US-AMGEN-USASP2011027493

PATIENT
  Sex: Female

DRUGS (2)
  1. ENBREL [Suspect]
     Indication: RHEUMATOID ARTHRITIS
     Dosage: 50 MG, 2 TIMES/WK
     Dates: start: 20070308, end: 20081026
  2. ENBREL [Suspect]
     Indication: PSORIASIS

REACTIONS (3)
  - DIARRHOEA [None]
  - DIVERTICULITIS [None]
  - WHITE BLOOD CELL COUNT INCREASED [None]
